FAERS Safety Report 6374381-6 (Version None)
Quarter: 2009Q3

REPORT INFORMATION
  Report Type: 
  Country: None (occurrence: None)
  Receive Date: 20090924
  Receipt Date: 20090918
  Transmission Date: 20100115
  Serious: Yes (Death, Hospitalization)
  Sender: FDA-Public Use
  Company Number: US-BAYER-200929253NA

PATIENT
  Age: 78 Year
  Sex: Male
  Weight: 70 kg

DRUGS (8)
  1. SORAFENIB [Suspect]
     Indication: NON-SMALL CELL LUNG CANCER
     Dosage: TOTAL DAILY DOSE: 800 MG  UNIT DOSE: 200 MG
     Route: 048
     Dates: start: 20070510, end: 20090815
  2. EXCEDRIN [Concomitant]
  3. FLOMAX [Concomitant]
     Dosage: 1 TABLET
  4. IMODIUM [Concomitant]
  5. MULTI-VITAMIN [Concomitant]
  6. PRILOSEC [Concomitant]
     Dosage: TOTAL DAILY DOSE: 20 MG
  7. TYLENOL [Concomitant]
  8. EXCEDRIN PM [Concomitant]

REACTIONS (4)
  - DISEASE PROGRESSION [None]
  - NON-SMALL CELL LUNG CANCER [None]
  - PLEURAL EFFUSION [None]
  - SUPRAVENTRICULAR TACHYCARDIA [None]
